FAERS Safety Report 6691790-6 (Version None)
Quarter: 2010Q2

REPORT INFORMATION
  Report Type: 
  Country: None (occurrence: None)
  Receive Date: 20100422
  Receipt Date: 20090629
  Transmission Date: 20101027
  Serious: No
  Sender: FDA-Public Use
  Company Number: US-ASTRAZENECA-2009UW18232

PATIENT
  Sex: Female
  Weight: 65.8 kg

DRUGS (3)
  1. TOPROL-XL [Suspect]
     Route: 048
  2. PROVENTIL [Concomitant]
  3. NASONEX [Concomitant]

REACTIONS (2)
  - ASTHMA [None]
  - FATIGUE [None]
